FAERS Safety Report 16530743 (Version 1)
Quarter: 2019Q3

REPORT INFORMATION
  Report Type: Spontaneous
  Country: US (occurrence: US)
  Receive Date: 20190523
  Receipt Date: 20190523
  Transmission Date: 20191004
  Serious: Yes (Hospitalization)
  Sender: FDA-Public Use
  Company Number: None

PATIENT
  Age: 77 Year
  Sex: Male
  Weight: 91 kg

DRUGS (1)
  1. NAPROXEN. [Suspect]
     Active Substance: NAPROXEN
     Route: 048
     Dates: start: 20180101, end: 20190206

REACTIONS (2)
  - Gastric haemorrhage [None]
  - Duodenal ulcer [None]

NARRATIVE: CASE EVENT DATE: 20190207
